FAERS Safety Report 7414177-7 (Version None)
Quarter: 2011Q2

REPORT INFORMATION
  Report Type: 
  Country: None (occurrence: None)
  Receive Date: 20110411
  Receipt Date: 20110411
  Transmission Date: 20111010
  Serious: Yes (Other)
  Sender: FDA-Public Use
  Company Number: None

PATIENT
  Sex: Female
  Weight: 78.0187 kg

DRUGS (1)
  1. METHOTREXATE [Suspect]
     Indication: CROHN'S DISEASE
     Dosage: 25MG/ 1CC ONCE A WEEK SQ INJECTION CONTAMINATED VIALS
     Route: 058
     Dates: start: 20100905, end: 20101031

REACTIONS (4)
  - MUSCULOSKELETAL STIFFNESS [None]
  - PYREXIA [None]
  - DIARRHOEA [None]
  - POLYMYALGIA RHEUMATICA [None]
